FAERS Safety Report 14753201 (Version 1)
Quarter: 2018Q2

REPORT INFORMATION
  Report Type: Spontaneous
  Country: JP (occurrence: JP)
  Receive Date: 20180412
  Receipt Date: 20180412
  Transmission Date: 20180711
  Serious: Yes (Hospitalization)
  Sender: FDA-Public Use
  Company Number: JP-SA-2018SA106257

PATIENT
  Age: 88 Year
  Sex: Female

DRUGS (2)
  1. NOVORAPID [Concomitant]
     Active Substance: INSULIN ASPART
     Indication: TYPE 1 DIABETES MELLITUS
  2. LANTUS [Suspect]
     Active Substance: INSULIN GLARGINE
     Indication: DIABETES MELLITUS
     Route: 058

REACTIONS (9)
  - Hyperglycaemia [Recovered/Resolved]
  - Lactic acidosis [Recovered/Resolved]
  - Malaise [Unknown]
  - Anti-insulin antibody increased [Unknown]
  - Diabetes mellitus inadequate control [Recovered/Resolved]
  - Blood pH decreased [Recovered/Resolved]
  - Blood lactic acid increased [Recovered/Resolved]
  - Cardiac failure chronic [Unknown]
  - Hypoglycaemia [Recovered/Resolved]
